FAERS Safety Report 4681094-5 (Version None)
Quarter: 2005Q2

REPORT INFORMATION
  Report Type: 
  Country: None (occurrence: None)
  Receive Date: 20050602
  Receipt Date: 20050602
  Transmission Date: 20051028
  Serious: Yes (Hospitalization)
  Sender: FDA-Public Use
  Company Number: None

PATIENT
  Age: 65 Year
  Sex: Female

DRUGS (1)
  1. LYMPHAZURIN [Suspect]
     Indication: BREAST CANCER
     Dosage: 1ML   X1    SUBCUTANEO
     Route: 058
     Dates: start: 20050428, end: 20050528

REACTIONS (2)
  - SKIN DISCOLOURATION [None]
  - SKIN REACTION [None]
